FAERS Safety Report 4307392-2 (Version None)
Quarter: 2004Q1

REPORT INFORMATION
  Report Type: 
  Country: None (occurrence: None)
  Receive Date: 20040226
  Receipt Date: 20040217
  Transmission Date: 20041129
  Serious: Yes (Hospitalization)
  Sender: FDA-Public Use
  Company Number: 2004195970FR

PATIENT
  Age: 29 Year
  Sex: Female
  Weight: 48 kg

DRUGS (6)
  1. XANAX [Suspect]
     Dosage: 0.75 MG, QD, ORAL
     Route: 048
     Dates: start: 20030115, end: 20031210
  2. IMOVANE (ZOPICLONE) [Suspect]
     Dosage: 7.5 MG QD, ORAL
     Route: 048
     Dates: start: 20030115, end: 20031210
  3. SOLIAN (AMISULPRIDE) [Suspect]
     Dosage: 200 MG, QD, ORAL
     Route: 048
     Dates: start: 20030315, end: 20031221
  4. DIHYDROERGOTAMINE MESYLATE [Suspect]
     Dosage: 2 DF, ORAL
     Route: 048
     Dates: start: 20031115, end: 20031231
  5. SEROPAM (CITALOPRAM HYDROBROMIDE [Suspect]
     Dosage: 20 MG, BID, ORAL
     Route: 048
     Dates: start: 20030315, end: 20031231
  6. DOLIPRANE [Concomitant]

REACTIONS (18)
  - ABDOMINAL PAIN [None]
  - ALANINE AMINOTRANSFERASE INCREASED [None]
  - ASCITES [None]
  - ASPARTATE AMINOTRANSFERASE INCREASED [None]
  - BIOPSY LIVER ABNORMAL [None]
  - BLOOD BILIRUBIN INCREASED [None]
  - CHRONIC HEPATITIS [None]
  - COLD SWEAT [None]
  - HEPATIC STEATOSIS [None]
  - HEPATITIS C VIRUS [None]
  - HEPATOCELLULAR DAMAGE [None]
  - HYPERCHLORAEMIA [None]
  - HYPERCHOLESTEROLAEMIA [None]
  - HYPERPHOSPHATAEMIA [None]
  - JAUNDICE [None]
  - METABOLIC ACIDOSIS [None]
  - PYREXIA [None]
  - VOMITING [None]
